FAERS Safety Report 7055802-2 (Version None)
Quarter: 2010Q4

REPORT INFORMATION
  Report Type: 
  Country: None (occurrence: None)
  Receive Date: 20101018
  Receipt Date: 20100929
  Transmission Date: 20110411
  Serious: Yes (Life-Threatening, Other)
  Sender: FDA-Public Use
  Company Number: 2010P1001492

PATIENT
  Sex: Female

DRUGS (3)
  1. CARBAMAZEPINE [Suspect]
     Indication: NEURALGIA
     Dosage: PO
     Route: 048
     Dates: start: 20100301, end: 20100915
  2. CON MEDS [Concomitant]
  3. PREV MEDS [Concomitant]

REACTIONS (3)
  - ANAPHYLACTIC SHOCK [None]
  - DRUG INTOLERANCE [None]
  - PNEUMONIA [None]
